FAERS Safety Report 24551644 (Version 1)
Quarter: 2024Q4

REPORT INFORMATION
  Report Type: Report from Study
  Country: US (occurrence: US)
  Receive Date: 20241026
  Receipt Date: 20241026
  Transmission Date: 20250115
  Serious: Yes (Other)
  Sender: ABBVIE
  Company Number: US-ABBVIE-5974816

PATIENT
  Age: 79 Year
  Sex: Female

DRUGS (1)
  1. SKYRIZI [Suspect]
     Active Substance: RISANKIZUMAB-RZAA
     Indication: Psoriasis
     Route: 058
     Dates: start: 20201116

REACTIONS (3)
  - Hepatic cirrhosis [Recovering/Resolving]
  - Renal failure [Recovering/Resolving]
  - Aortic disorder [Not Recovered/Not Resolved]

NARRATIVE: CASE EVENT DATE: 20241015
